FAERS Safety Report 8439960-0 (Version None)
Quarter: 2012Q2

REPORT INFORMATION
  Report Type: 
  Country: None (occurrence: None)
  Receive Date: 20120615
  Receipt Date: 20120604
  Transmission Date: 20120825
  Serious: Yes (Other)
  Sender: FDA-Public Use
  Company Number: DE-FRI-1000031253

PATIENT
  Sex: Female
  Weight: 86 kg

DRUGS (1)
  1. FOSFOMYCIN [Suspect]
     Route: 048
     Dates: start: 20120604, end: 20120604

REACTIONS (3)
  - BLOOD GLUCOSE INCREASED [None]
  - PARAESTHESIA ORAL [None]
  - TREMOR [None]
